FAERS Safety Report 13414412 (Version 1)
Quarter: 2017Q2

REPORT INFORMATION
  Report Type: Spontaneous
  Country: DE (occurrence: DE)
  Receive Date: 20170407
  Receipt Date: 20170407
  Transmission Date: 20170830
  Serious: Yes (Other)
  Sender: FDA-Public Use
  Company Number: DE-ASTRAZENECA-2017SE34752

PATIENT
  Age: 78 Year
  Sex: Male
  Weight: 56 kg

DRUGS (1)
  1. DAXAS [Suspect]
     Active Substance: ROFLUMILAST
     Indication: CHRONIC OBSTRUCTIVE PULMONARY DISEASE
     Dosage: 500.0MG UNKNOWN
     Route: 048
     Dates: start: 201112, end: 201703

REACTIONS (3)
  - Endocarditis [Recovering/Resolving]
  - Sepsis [Recovering/Resolving]
  - Lactobacillus infection [Recovering/Resolving]

NARRATIVE: CASE EVENT DATE: 201702
